FAERS Safety Report 5104282-2 (Version None)
Quarter: 2006Q3

REPORT INFORMATION
  Report Type: 
  Country: None (occurrence: None)
  Receive Date: 20060912
  Receipt Date: 20060912
  Transmission Date: 20061208
  Serious: Yes (Life-Threatening, Hospitalization)
  Sender: FDA-Public Use
  Company Number: None

PATIENT
  Sex: Male

DRUGS (15)
  1. WARFARIN SODIUM [Suspect]
     Indication: DEEP VEIN THROMBOSIS
     Dosage: 7.5 MG / 5 MG MF ALL OTHER DAYS PO
     Route: 048
     Dates: start: 20041222, end: 20060608
  2. OMEPRAZOLE [Concomitant]
  3. MULTI-VITAMIN [Concomitant]
  4. BACLOFEN [Concomitant]
  5. ZINC OXIDE [Concomitant]
  6. PHOSPHATES ENEMA [Concomitant]
  7. VENLAFAXIINE HCL [Concomitant]
  8. BUPROPION HCL [Concomitant]
  9. PSYLLIUM [Concomitant]
  10. BACITRACIN [Concomitant]
  11. TRAZODONE HCL [Concomitant]
  12. MORPHINE [Concomitant]
  13. MORPHINE SULFATE [Concomitant]
  14. DOCUSATE [Concomitant]
  15. SALSALATE [Concomitant]

REACTIONS (2)
  - GASTROINTESTINAL HAEMORRHAGE [None]
  - INTERNATIONAL NORMALISED RATIO INCREASED [None]
